FAERS Safety Report 8215439-6 (Version None)
Quarter: 2012Q1

REPORT INFORMATION
  Report Type: 
  Country: None (occurrence: None)
  Receive Date: 20120316
  Receipt Date: 20120301
  Transmission Date: 20120608
  Serious: Yes (Hospitalization)
  Sender: FDA-Public Use
  Company Number: US-ROCHE-1038793

PATIENT
  Sex: Female
  Weight: 69.8 kg

DRUGS (11)
  1. ENZASTAURIN [Suspect]
     Route: 048
     Dates: start: 20090410
  2. LISINOPRIL [Concomitant]
     Dates: start: 20090303
  3. SIMVASTATIN [Concomitant]
     Dates: start: 20090303
  4. ENZASTAURIN [Suspect]
     Indication: DIFFUSE LARGE B-CELL LYMPHOMA
     Route: 048
     Dates: start: 20090321, end: 20090321
  5. VINCRISTINE [Suspect]
     Indication: DIFFUSE LARGE B-CELL LYMPHOMA
     Route: 042
     Dates: start: 20090320, end: 20090710
  6. PREDNISONE [Suspect]
     Indication: DIFFUSE LARGE B-CELL LYMPHOMA
     Route: 048
     Dates: start: 20090320, end: 20090710
  7. MABTHERA [Suspect]
     Indication: DIFFUSE LARGE B-CELL LYMPHOMA
     Route: 042
     Dates: start: 20090320, end: 20090710
  8. DOXORUBICIN HYDROCHLORIDE [Suspect]
     Indication: DIFFUSE LARGE B-CELL LYMPHOMA
     Route: 042
     Dates: start: 20090320, end: 20090710
  9. ENZASTAURIN [Suspect]
     Route: 048
     Dates: start: 20090322, end: 20090326
  10. CYCLOPHOSPHAMIDE [Suspect]
     Indication: DIFFUSE LARGE B-CELL LYMPHOMA
     Route: 042
     Dates: start: 20090320, end: 20090710
  11. LEVOTHYROXINE SODIUM [Concomitant]
     Dates: start: 20090303

REACTIONS (3)
  - HAEMOGLOBIN DECREASED [None]
  - FALL [None]
  - FEMORAL NECK FRACTURE [None]
